FAERS Safety Report 20641041 (Version 1)
Quarter: 2022Q1

REPORT INFORMATION
  Report Type: Spontaneous
  Country: SE (occurrence: SE)
  Receive Date: 20220327
  Receipt Date: 20220327
  Transmission Date: 20220423
  Serious: Yes (Disabling)
  Sender: FDA-Public Use
  Company Number: None

PATIENT
  Age: 33 Year
  Sex: Female
  Weight: 65 kg

DRUGS (1)
  1. DROSPIRENONE [Suspect]
     Active Substance: DROSPIRENONE
     Indication: Contraception
     Route: 048
     Dates: end: 20211130

REACTIONS (3)
  - Mucosal atrophy [Recovered/Resolved with Sequelae]
  - Libido decreased [Recovered/Resolved]
  - Mucosal dryness [Recovered/Resolved with Sequelae]

NARRATIVE: CASE EVENT DATE: 20201001
